FAERS Safety Report 18063720 (Version 1)
Quarter: 2020Q3

REPORT INFORMATION
  Report Type: Spontaneous
  Country: FI (occurrence: FI)
  Receive Date: 20200724
  Receipt Date: 20200724
  Transmission Date: 20201103
  Serious: Yes (Other)
  Sender: FDA-Public Use
  Company Number: FI-009507513-2007FIN007098

PATIENT
  Age: 41 Year
  Sex: Male

DRUGS (1)
  1. ZEPATIER [Suspect]
     Active Substance: ELBASVIR\GRAZOPREVIR
     Indication: HEPATITIS C
     Dosage: UNK
     Route: 048
     Dates: start: 201908, end: 201909

REACTIONS (5)
  - Anxiety [Unknown]
  - Hepatitis C [Unknown]
  - Product prescribing issue [Unknown]
  - Incorrect product administration duration [Unknown]
  - Emotional distress [Unknown]

NARRATIVE: CASE EVENT DATE: 2019
